FAERS Safety Report 26185823 (Version 1)
Quarter: 2025Q4

REPORT INFORMATION
  Report Type: Other
  Country: EU (occurrence: EU)
  Receive Date: 20251222
  Receipt Date: 20251222
  Transmission Date: 20260118
  Serious: Yes (Hospitalization)
  Sender: Atnahs Healthcare
  Company Number: None

PATIENT

DRUGS (1)
  1. DIAZEPAM [Suspect]
     Active Substance: DIAZEPAM
     Indication: Behaviour disorder
     Dosage: 5 MG, DAILY
     Route: 048
     Dates: start: 20240531, end: 20240708

REACTIONS (4)
  - Suicide attempt [Recovered/Resolved]
  - Hallucination, visual [Recovered/Resolved]
  - Somatic hallucination [Unknown]
  - Aggression [Recovered/Resolved]

NARRATIVE: CASE EVENT DATE: 20240601
